FAERS Safety Report 6994571-9 (Version None)
Quarter: 2010Q3

REPORT INFORMATION
  Report Type: 
  Country: None (occurrence: None)
  Receive Date: 20100916
  Receipt Date: 20100916
  Transmission Date: 20110219
  Serious: No
  Sender: FDA-Public Use
  Company Number: None

PATIENT
  Age: 73 Year
  Sex: Female
  Weight: 67.5 kg

DRUGS (9)
  1. ZYPREXA [Suspect]
     Indication: MAJOR DEPRESSION
     Dosage: 30 MG UNKNOWN PO
     Route: 048
     Dates: start: 20081112, end: 20090712
  2. AVALIDE [Concomitant]
  3. SIMVASTATIN [Concomitant]
  4. DEPAKOTE [Concomitant]
  5. SERTRALINE HYDROCHLORIDE [Concomitant]
  6. XALATAN [Concomitant]
  7. COMBIGAN [Concomitant]
  8. TIMOLOL [Concomitant]
  9. XANAX [Concomitant]

REACTIONS (3)
  - EXTRAPYRAMIDAL DISORDER [None]
  - FALL [None]
  - SUBDURAL HAEMATOMA [None]
